FAERS Safety Report 14121692 (Version 1)
Quarter: 2017Q4

REPORT INFORMATION
  Report Type: Spontaneous
  Country: FR (occurrence: FR)
  Receive Date: 20171024
  Receipt Date: 20171024
  Transmission Date: 20180321
  Serious: Yes (Other)
  Sender: FDA-Public Use
  Company Number: FR-MERCK KGAA-2031308

PATIENT
  Age: 65 Year
  Sex: Female

DRUGS (1)
  1. NOVOTHYROX [Suspect]
     Active Substance: LEVOTHYROXINE SODIUM
     Indication: HYPOTHYROIDISM
     Route: 048
     Dates: start: 201704

REACTIONS (6)
  - Blood thyroid stimulating hormone increased [Unknown]
  - Hyperhidrosis [Unknown]
  - Alopecia [Unknown]
  - Anxiety [Unknown]
  - Blood thyroid stimulating hormone normal [Unknown]
  - Suicide attempt [Unknown]

NARRATIVE: CASE EVENT DATE: 201704
